FAERS Safety Report 7934566-1 (Version None)
Quarter: 2011Q4

REPORT INFORMATION
  Report Type: 
  Country: None (occurrence: None)
  Receive Date: 20111122
  Receipt Date: 20111118
  Transmission Date: 20120403
  Serious: Yes (Hospitalization, Other)
  Sender: FDA-Public Use
  Company Number: DE-BRISTOL-MYERS SQUIBB COMPANY-16165920

PATIENT
  Age: 74 Year
  Sex: Female

DRUGS (8)
  1. ZYPREXA [Suspect]
     Indication: PSYCHOTIC DISORDER
     Dosage: 20MG INCREASED TO 30MG THEN REDUCED TO 20 MG
     Route: 048
     Dates: start: 20080408
  2. ABILIFY [Suspect]
     Indication: SCHIZOPHRENIA, PARANOID TYPE
     Dosage: 5 MG TO 10 MG TO 15 MG.
     Route: 048
     Dates: start: 20110818, end: 20110924
  3. ZYPREXA [Suspect]
     Indication: SCHIZOPHRENIA, PARANOID TYPE
     Dosage: 20MG INCREASED TO 30MG THEN REDUCED TO 20 MG
     Route: 048
     Dates: start: 20080408
  4. METOPROLOL SUCCINATE [Concomitant]
     Indication: HYPERTENSION
     Dosage: 1 AND 1/2. UNM.
     Route: 048
  5. BISOPROLOL FUMARATE AND HYDROCHLOROTHIAZIDE [Concomitant]
     Indication: HYPERTENSION
     Dosage: 5/12.5 UNM
     Route: 048
  6. TIAPRIDE HCL [Concomitant]
     Indication: DYSKINESIA
     Route: 048
     Dates: start: 20060101
  7. ACTRAPHANE [Concomitant]
     Indication: DIABETES MELLITUS
     Route: 058
  8. ABILIFY [Suspect]
     Indication: PSYCHOTIC DISORDER
     Dosage: 5 MG TO 10 MG TO 15 MG.
     Route: 048
     Dates: start: 20110818, end: 20110924

REACTIONS (1)
  - PSYCHOTIC DISORDER [None]
